FAERS Safety Report 12237769 (Version 1)
Quarter: 2016Q2

REPORT INFORMATION
  Report Type: Spontaneous
  Country: US (occurrence: None)
  Receive Date: 20160404
  Receipt Date: 20160404
  Transmission Date: 20160815
  Serious: Yes (Disabling)
  Sender: FDA-Public Use
  Company Number: None

PATIENT
  Age: 31 Year
  Sex: Female
  Weight: 74.84 kg

DRUGS (3)
  1. ALBUTEROL. [Concomitant]
     Active Substance: ALBUTEROL
  2. ZYRTEC [Concomitant]
     Active Substance: CETIRIZINE HYDROCHLORIDE
  3. KENALOG [Suspect]
     Active Substance: TRIAMCINOLONE ACETONIDE
     Indication: INTERVERTEBRAL DISC PROTRUSION
     Route: 058
     Dates: start: 20150401, end: 20150401

REACTIONS (10)
  - Menstrual disorder [None]
  - Major depression [None]
  - Hypoaesthesia [None]
  - Paraesthesia [None]
  - Post-traumatic stress disorder [None]
  - Condition aggravated [None]
  - Grip strength decreased [None]
  - Muscle spasms [None]
  - Migraine [None]
  - Mental disorder [None]

NARRATIVE: CASE EVENT DATE: 20150401
